FAERS Safety Report 18534085 (Version 1)
Quarter: 2020Q4

REPORT INFORMATION
  Report Type: Spontaneous
  Country: US (occurrence: US)
  Receive Date: 20201123
  Receipt Date: 20201123
  Transmission Date: 20210114
  Serious: Yes (Hospitalization)
  Sender: FDA-Public Use
  Company Number: None

PATIENT
  Age: 78 Year
  Sex: Female
  Weight: 54.43 kg

DRUGS (3)
  1. REMDESIVIR 200MG [Concomitant]
     Active Substance: REMDESIVIR
     Dates: start: 20201119, end: 20201119
  2. REMDESIVIR 100MG [Suspect]
     Active Substance: REMDESIVIR
  3. REMDESIVIR 100MG [Concomitant]
     Active Substance: REMDESIVIR
     Dates: start: 20201120, end: 20201120

REACTIONS (2)
  - Vomiting [None]
  - Nausea [None]

NARRATIVE: CASE EVENT DATE: 20201121
